FAERS Safety Report 9375723 (Version 1)
Quarter: 2013Q2

REPORT INFORMATION
  Report Type: Spontaneous
  Country: JP (occurrence: JP)
  Receive Date: 20130628
  Receipt Date: 20130628
  Transmission Date: 20140414
  Serious: Yes (Hospitalization)
  Sender: FDA-Public Use
  Company Number: JP-EISAI INC-E2020-12443-SPO-JP

PATIENT
  Age: 83 Year
  Sex: Male

DRUGS (5)
  1. ARICEPT [Suspect]
     Indication: DEMENTIA ALZHEIMER^S TYPE
     Route: 048
     Dates: end: 20121010
  2. ARICEPT [Suspect]
     Route: 048
     Dates: start: 201211
  3. RAIPECK [Concomitant]
     Route: 048
     Dates: end: 20121010
  4. AMLODIN OD [Concomitant]
     Indication: HYPERTENSION
     Route: 048
     Dates: end: 20121010
  5. TAKEPRON [Concomitant]
     Route: 048
     Dates: end: 20121010

REACTIONS (1)
  - Pharyngeal oedema [Recovered/Resolved]
